FAERS Safety Report 5035792-4 (Version None)
Quarter: 2006Q2

REPORT INFORMATION
  Report Type: 
  Country: None (occurrence: None)
  Receive Date: 20060526
  Receipt Date: 20060421
  Transmission Date: 20061013
  Serious: No
  Sender: FDA-Public Use
  Company Number: FABR-11503

PATIENT
  Age: 38 Year
  Sex: Male
  Weight: 88.4514 kg

DRUGS (5)
  1. FABRAZYME [Suspect]
     Indication: FABRY'S DISEASE
  2. TEGRETOL [Concomitant]
  3. TYLENOL (CAPLET) [Concomitant]
  4. HYDROCHLOROTHIAZIDE [Concomitant]
  5. BENADRYL [Concomitant]

REACTIONS (6)
  - ABNORMAL SENSATION IN EYE [None]
  - HYPOACUSIS [None]
  - NASAL CONGESTION [None]
  - PLANTAR FASCIITIS [None]
  - TINNITUS [None]
  - VISUAL ACUITY REDUCED [None]
